FAERS Safety Report 5255347-6 (Version None)
Quarter: 2007Q1

REPORT INFORMATION
  Report Type: 
  Country: None (occurrence: None)
  Receive Date: 20070305
  Receipt Date: 20070222
  Transmission Date: 20070707
  Serious: Yes (Hospitalization)
  Sender: FDA-Public Use
  Company Number: SE-ROCHE-481180

PATIENT
  Age: 61 Year
  Sex: Female

DRUGS (6)
  1. IKTORIVIL [Suspect]
     Indication: DRUG USE FOR UNKNOWN INDICATION
     Route: 065
     Dates: start: 20061210, end: 20061215
  2. TEMODAL [Suspect]
     Indication: DRUG USE FOR UNKNOWN INDICATION
     Route: 065
     Dates: end: 20061210
  3. DAKTACORT [Concomitant]
  4. DIFLUCAN [Concomitant]
     Route: 048
  5. IMOVANE [Concomitant]
  6. DESLORATADINE [Concomitant]

REACTIONS (3)
  - PANCYTOPENIA [None]
  - RASH [None]
  - VASCULITIS [None]
